FAERS Safety Report 8298730-7 (Version None)
Quarter: 2012Q2

REPORT INFORMATION
  Report Type: 
  Country: None (occurrence: None)
  Receive Date: 20120419
  Receipt Date: 20120409
  Transmission Date: 20120825
  Serious: Yes (Hospitalization, Other)
  Sender: FDA-Public Use
  Company Number: US-VERTEX PHARMACEUTICALS INC.-AE-2012-003440

PATIENT
  Sex: Female

DRUGS (7)
  1. PEGASYS [Concomitant]
     Indication: HEPATITIS C
     Route: 058
     Dates: start: 20111025, end: 20111205
  2. PEGASYS [Concomitant]
     Route: 058
     Dates: start: 20111212, end: 20120103
  3. INCIVEK [Suspect]
     Indication: HEPATITIS C
     Route: 048
     Dates: start: 20111025, end: 20111227
  4. RIBAVIRIN [Concomitant]
     Route: 048
     Dates: start: 20111212, end: 20120103
  5. RIBAVIRIN [Concomitant]
     Indication: HEPATITIS C
     Route: 048
     Dates: start: 20111025, end: 20111205
  6. RIBAVIRIN [Concomitant]
     Route: 048
     Dates: start: 20111205, end: 20111212
  7. PEGASYS [Concomitant]
     Route: 058
     Dates: start: 20111205, end: 20111212

REACTIONS (9)
  - RASH GENERALISED [None]
  - ACCIDENTAL OVERDOSE [None]
  - PRURITUS [None]
  - EOSINOPHIL COUNT INCREASED [None]
  - EYE SWELLING [None]
  - CELLULITIS [None]
  - ANAEMIA [None]
  - OCULAR HYPERAEMIA [None]
  - OEDEMA PERIPHERAL [None]
